FAERS Safety Report 8897893 (Version 1)
Quarter: 2012Q4

REPORT INFORMATION
  Report Type: 
  Country: US (occurrence: US)
  Receive Date: 20121108
  Receipt Date: 20121108
  Transmission Date: 20130627
  Serious: No
  Sender: FDA-Public Use
  Company Number: US-AMGEN-USASP2012026369

PATIENT
  Age: 58 Year
  Sex: Female
  Weight: 104.31 kg

DRUGS (14)
  1. ENBREL [Suspect]
     Indication: RHEUMATOID ARTHRITIS
     Dosage: 50 mg, qwk
     Route: 058
  2. ENBREL [Suspect]
     Indication: OSTEOARTHRITIS
  3. NAPROSYN /00256201/ [Concomitant]
     Dosage: 500 mg, UNK
     Route: 048
  4. ZOLOFT [Concomitant]
     Dosage: 50 mg, UNK
     Route: 048
  5. METHOTREXATE [Concomitant]
     Dosage: 2.5 mg, UNK
     Route: 048
  6. HUMIRA [Concomitant]
     Dosage: 40 mg, UNK
     Route: 058
  7. FLONASE [Concomitant]
     Dosage: 0.05 %, UNK
     Route: 045
  8. ADVAIR [Concomitant]
     Dosage: UNK
  9. EPIPEN [Concomitant]
     Dosage: 0.3 mg, UNK
  10. PROAIR HFA [Concomitant]
     Dosage: UNK
  11. MULTITABS [Concomitant]
     Dosage: UNK
     Route: 048
  12. FOLIC ACID [Concomitant]
     Dosage: UNK
     Route: 048
  13. TYLENOL 8 HOUR [Concomitant]
     Dosage: 650 mg, UNK
     Route: 048
  14. HYDROCHLOROTHIAZIDE WITH TRIAMTERENE [Concomitant]
     Dosage: UNK
     Route: 048

REACTIONS (1)
  - Drug ineffective [Unknown]
